FAERS Safety Report 7072706-X (Version None)
Quarter: 2010Q4

REPORT INFORMATION
  Report Type: 
  Country: None (occurrence: None)
  Receive Date: 20101029
  Receipt Date: 20100302
  Transmission Date: 20110411
  Serious: No
  Sender: FDA-Public Use
  Company Number: A0847578A

PATIENT
  Age: 69 Year
  Sex: Female

DRUGS (3)
  1. ADVAIR DISKUS 100/50 [Suspect]
     Indication: CHRONIC OBSTRUCTIVE PULMONARY DISEASE
     Dosage: 1PUFF TWICE PER DAY
     Route: 055
     Dates: start: 20100203, end: 20100201
  2. PREDNISONE [Concomitant]
  3. NEBULIZER [Concomitant]
     Route: 055

REACTIONS (5)
  - CHEST DISCOMFORT [None]
  - HOT FLUSH [None]
  - PANIC ATTACK [None]
  - THROAT TIGHTNESS [None]
  - TREMOR [None]
